FAERS Safety Report 8110533-2 (Version None)
Quarter: 2012Q1

REPORT INFORMATION
  Report Type: 
  Country: None (occurrence: None)
  Receive Date: 20120203
  Receipt Date: 20120125
  Transmission Date: 20120608
  Serious: Yes (Hospitalization, Other)
  Sender: FDA-Public Use
  Company Number: BR-AMGEN-BRASP2012005943

PATIENT
  Age: 54 Year
  Sex: Female
  Weight: 90 kg

DRUGS (6)
  1. ATENOLOL [Concomitant]
     Indication: HYPERTENSION
     Dosage: UNK
  2. ENBREL [Suspect]
     Indication: RHEUMATOID ARTHRITIS
     Dosage: 50 MG, WEEKLY
     Route: 058
     Dates: start: 20110211
  3. ENBREL [Suspect]
     Dosage: 50 MG, WEEKLY
     Route: 058
     Dates: start: 20120125
  4. SERTRALINE HYDROCHLORIDE [Concomitant]
     Indication: PRODUCT USED FOR UNKNOWN INDICATION
     Dosage: UNK
  5. CORUS [Concomitant]
     Indication: HYPERTENSION
     Dosage: UNK
  6. CLONAZEPAM [Concomitant]
     Indication: ANXIOLYTIC THERAPY
     Dosage: UNK
     Dates: start: 20110101

REACTIONS (1)
  - THROMBOSIS [None]
